FAERS Safety Report 6839032-2 (Version None)
Quarter: 2010Q3

REPORT INFORMATION
  Report Type: 
  Country: None (occurrence: None)
  Receive Date: 20100714
  Receipt Date: 20100311
  Transmission Date: 20110219
  Serious: Yes (Hospitalization)
  Sender: FDA-Public Use
  Company Number: US-ASTRAZENECA-2010SE32085

PATIENT
  Age: 13 Year
  Sex: Female

DRUGS (10)
  1. SEROQUEL [Suspect]
     Dosage: 25 MG-300MG
     Route: 048
     Dates: start: 20050421
  2. BUPROPION HCL [Concomitant]
     Route: 048
     Dates: start: 20050421
  3. WELLBUTRIN [Concomitant]
     Dates: start: 20050331
  4. ABILIFY [Concomitant]
     Dates: start: 20050331
  5. HALDOL [Concomitant]
     Dates: start: 20051129
  6. RISPERDAL [Concomitant]
     Dates: start: 20050101
  7. GEODON [Concomitant]
     Dates: start: 20050101
  8. DEPAKOTE [Concomitant]
     Dates: start: 20050101
  9. LEXAPRO [Concomitant]
     Dates: start: 20051216
  10. DESYREL [Concomitant]
     Dates: start: 20051216

REACTIONS (6)
  - BIPOLAR I DISORDER [None]
  - CATATONIA [None]
  - GLUCOSE TOLERANCE IMPAIRED [None]
  - REGRESSIVE BEHAVIOUR [None]
  - SCHIZOAFFECTIVE DISORDER [None]
  - SUICIDAL BEHAVIOUR [None]
